FAERS Safety Report 13576214 (Version 1)
Quarter: 2017Q2

REPORT INFORMATION
  Report Type: Spontaneous
  Country: IT (occurrence: IT)
  Receive Date: 20170524
  Receipt Date: 20170524
  Transmission Date: 20170830
  Serious: Yes (Other)
  Sender: FDA-Public Use
  Company Number: IT-ELI_LILLY_AND_COMPANY-IT201705007909

PATIENT
  Age: 41 Year
  Sex: Male

DRUGS (2)
  1. OXALIPLATIN. [Suspect]
     Active Substance: OXALIPLATIN
     Indication: NEUROENDOCRINE CARCINOMA
     Dosage: UNK, CYCLICAL
     Route: 065
     Dates: start: 200805
  2. GEMCITABINE HYDROCHLORIDE. [Suspect]
     Active Substance: GEMCITABINE HYDROCHLORIDE
     Indication: NEUROENDOCRINE CARCINOMA
     Dosage: UNK, CYCLICAL
     Route: 065
     Dates: end: 200805

REACTIONS (1)
  - Neurotoxicity [Unknown]
